FAERS Safety Report 13735324 (Version 12)
Quarter: 2018Q3

REPORT INFORMATION
  Report Type: Report from Study
  Country: US (occurrence: US)
  Receive Date: 20170710
  Receipt Date: 20180920
  Transmission Date: 20181010
  Serious: Yes (Hospitalization, Other)
  Sender: FDA-Public Use
  Company Number: PHEH2017US020909

PATIENT
  Age: 68 Year
  Sex: Female

DRUGS (5)
  1. BACLOFEN. [Concomitant]
     Active Substance: BACLOFEN
     Indication: MULTIPLE SCLEROSIS
     Dosage: 20 MG, TID
     Route: 048
     Dates: start: 20170721
  2. GABAPENTIN. [Concomitant]
     Active Substance: GABAPENTIN
     Indication: NEUROPATHY PERIPHERAL
     Dosage: 600 MG, BID
     Route: 048
     Dates: start: 20170630
  3. CLONAZEPAM. [Concomitant]
     Active Substance: CLONAZEPAM
     Indication: RESTLESSNESS
     Dosage: 0.5 MG, QD
     Route: 048
     Dates: start: 20170522
  4. GILENYA [Suspect]
     Active Substance: FINGOLIMOD HYDROCHLORIDE
     Indication: MULTIPLE SCLEROSIS
     Dosage: 0.5 MG, QD
     Route: 048
     Dates: start: 20170320
  5. LEVOTHYROXINE. [Concomitant]
     Active Substance: LEVOTHYROXINE
     Indication: HYPOTHYROIDISM
     Dosage: 125 MG, QD
     Route: 048

REACTIONS (10)
  - Loss of consciousness [Unknown]
  - Seizure [Recovered/Resolved]
  - Multiple sclerosis relapse [Unknown]
  - Fatigue [Unknown]
  - Seizure [Unknown]
  - Inflammatory bowel disease [Unknown]
  - Seizure [Recovered/Resolved]
  - Confusional state [Unknown]
  - Fall [Unknown]
  - Partial seizures with secondary generalisation [Recovered/Resolved]

NARRATIVE: CASE EVENT DATE: 2017
